FAERS Safety Report 6101096-1 (Version None)
Quarter: 2009Q1

REPORT INFORMATION
  Report Type: 
  Country: None (occurrence: None)
  Receive Date: 20090304
  Receipt Date: 20070512
  Transmission Date: 20090719
  Serious: Yes (Hospitalization, Other)
  Sender: FDA-Public Use
  Company Number: US-ASTRAZENECA-2006UW10994

PATIENT
  Sex: Female
  Weight: 129.7 kg

DRUGS (68)
  1. SEROQUEL [Suspect]
     Route: 048
     Dates: start: 19990929
  2. SEROQUEL [Suspect]
     Route: 048
     Dates: start: 19991006
  3. SEROQUEL [Suspect]
     Route: 048
     Dates: start: 20000113
  4. SEROQUEL [Suspect]
     Route: 048
     Dates: start: 20000113
  5. SEROQUEL [Suspect]
     Route: 048
     Dates: start: 20030101
  6. RISPERDAL [Concomitant]
     Dates: start: 20040401
  7. DIPHENHYDRAMINE HCL [Concomitant]
     Dates: start: 19990808
  8. LITHIUM [Concomitant]
     Dates: start: 19820101, end: 19890101
  9. LITHIUM [Concomitant]
     Route: 048
     Dates: start: 19900101
  10. AMOXICILLIN [Concomitant]
     Dates: start: 20001003
  11. ACETAMINOPHEN AND HYDROCODONE BITARTRATE [Concomitant]
     Dates: start: 20001003
  12. CHARCOAL ACTIVATED + SORBITOL [Concomitant]
     Dates: start: 20010612
  13. SALICYLATE [Concomitant]
     Dates: start: 20010612
  14. ACETAMINOPHEN [Concomitant]
     Dates: start: 20010612
  15. ACETAMINOPHEN [Concomitant]
     Dates: start: 20061026
  16. HYDROCODONE BITARTRATE + ACETAMINOPHEN [Concomitant]
     Dosage: 1- 2 TABLETS
     Route: 048
     Dates: start: 20050628
  17. HYDROCODONE BITARTRATE + ACETAMINOPHEN [Concomitant]
     Dosage: 1- 2 TABLETS
     Route: 048
     Dates: start: 20050628
  18. HYDROCODONE BITARTRATE + ACETAMINOPHEN [Concomitant]
     Dosage: 1- 2 TABLETS
     Route: 048
     Dates: start: 20051208
  19. HYDROCODONE BITARTRATE + ACETAMINOPHEN [Concomitant]
     Dosage: 1- 2 TABLETS
     Route: 048
     Dates: start: 20051208
  20. HYDROCODONE BITARTRATE + ACETAMINOPHEN [Concomitant]
     Dosage: 5MG/352MG
     Route: 048
     Dates: start: 20060115
  21. HYDROCODONE BITARTRATE + ACETAMINOPHEN [Concomitant]
     Dosage: 5MG/500MG
     Dates: start: 20060206
  22. HYDROCODONE BITARTRATE + ACETAMINOPHEN [Concomitant]
     Dosage: 5MG/500MG
     Dates: start: 20060301
  23. HYDROCODONE BITARTRATE + ACETAMINOPHEN [Concomitant]
     Dosage: 5MG/500MG
     Dates: start: 20060308
  24. HYDROCODONE BITARTRATE + ACETAMINOPHEN [Concomitant]
     Dosage: 5MG/500MG
     Dates: start: 20060612
  25. HYDROCODONE BITARTRATE + ACETAMINOPHEN [Concomitant]
     Dosage: 5MG/500MG
     Dates: start: 20061227
  26. HYDROCODONE BITARTRATE + ACETAMINOPHEN [Concomitant]
     Dosage: 5MG/500MG
     Dates: start: 20070115
  27. HYDROCODONE BITARTRATE + ACETAMINOPHEN [Concomitant]
     Dosage: 5MG/500MG
     Dates: start: 20070122
  28. HYDROCODONE BITARTRATE + ACETAMINOPHEN [Concomitant]
     Dosage: 5MG/500MG
     Dates: start: 20070202
  29. HYDROCODONE BITARTRATE + ACETAMINOPHEN [Concomitant]
     Dosage: 5MG/500MG
     Dates: start: 20070211
  30. HYDROCODONE BITARTRATE + ACETAMINOPHEN [Concomitant]
     Dosage: 5MG/500MG
     Dates: start: 20070212
  31. HYDROCODONE BITARTRATE + ACETAMINOPHEN [Concomitant]
     Dosage: 5MG/500MG
     Dates: start: 20070601
  32. TRETINOIN [Concomitant]
     Dates: start: 20060222
  33. TRETINOIN [Concomitant]
     Dates: start: 20060612
  34. TRETINOIN [Concomitant]
     Dates: start: 20061027
  35. TERCONAZOLE [Concomitant]
     Route: 067
     Dates: start: 20060612
  36. NITROFURANTOIN [Concomitant]
     Dates: start: 20060616
  37. WALGREENS [Concomitant]
     Dates: start: 20061024
  38. ULFRAMETH/TRIMETHOPRIM [Concomitant]
     Dosage: 800/160
     Dates: start: 20070601
  39. ZOFRAN [Concomitant]
     Route: 048
     Dates: start: 20051027
  40. ZOFRAN [Concomitant]
     Route: 048
     Dates: start: 20051027
  41. ASPIRIN [Concomitant]
     Dosage: 1-2 TABLETS
     Route: 048
     Dates: start: 20050404
  42. ASPIRIN [Concomitant]
     Dosage: 1-2 TABLETS
     Route: 048
     Dates: start: 20050404
  43. GLIPIZIDE [Concomitant]
     Dosage: 1 HALF
     Route: 048
     Dates: start: 20040626
  44. GLIPIZIDE [Concomitant]
     Dates: start: 20060608
  45. MEDROXYPROGESTERONE [Concomitant]
     Route: 048
     Dates: start: 20030613
  46. LEXAPRO [Concomitant]
     Dates: start: 20060608
  47. LEXAPRO [Concomitant]
     Dates: start: 20040401
  48. ATENOLOL [Concomitant]
     Dates: start: 20060608
  49. ATENOLOL [Concomitant]
     Dates: start: 20040101
  50. ACEPRIL [Concomitant]
  51. SYNTHROID [Concomitant]
     Dates: start: 20060608
  52. SYNTHROID [Concomitant]
     Dates: start: 20040401
  53. PROVERA [Concomitant]
     Dates: start: 20060608, end: 20070101
  54. NEURONTIN [Concomitant]
     Dates: start: 20060608
  55. LISINOPRIL [Concomitant]
     Dates: start: 20060608
  56. METFORMIN HCL [Concomitant]
     Dates: start: 20060608
  57. CAMPRAL [Concomitant]
     Dates: start: 20060608
  58. BENADRYE [Concomitant]
     Dates: start: 19860401
  59. NAVONE [Concomitant]
     Dates: start: 19870908
  60. COGENTIN [Concomitant]
     Dates: start: 19870925
  61. COGENTIN [Concomitant]
     Dates: start: 19900101
  62. COGENTIN [Concomitant]
     Dates: start: 19980505
  63. HALDOL [Concomitant]
     Dates: start: 19880101
  64. NAPROXEN [Concomitant]
     Dates: start: 19940805
  65. PROLIXIN [Concomitant]
     Dates: start: 19940101
  66. LORAZEPAM [Concomitant]
     Dates: start: 19940101
  67. OLANZAPINE [Concomitant]
     Route: 048
     Dates: start: 19980505, end: 20010101
  68. PROPRANOLOL [Concomitant]
     Dates: start: 19980505

REACTIONS (22)
  - ARTHRALGIA [None]
  - CARBUNCLE [None]
  - CELLULITIS [None]
  - CHEST PAIN [None]
  - DIARRHOEA [None]
  - DYSPNOEA [None]
  - EAR OPERATION [None]
  - FACIAL PALSY [None]
  - HERPES ZOSTER OTICUS [None]
  - INFECTED CYST [None]
  - OVARIAN CYST [None]
  - PAIN IN EXTREMITY [None]
  - PHARYNGITIS [None]
  - PNEUMONIA [None]
  - SKIN INFECTION [None]
  - THERMAL BURN [None]
  - TOOTH EXTRACTION [None]
  - TYPE 2 DIABETES MELLITUS [None]
  - UPPER RESPIRATORY TRACT INFECTION [None]
  - VAGINAL HAEMORRHAGE [None]
  - VOMITING [None]
  - XEROSIS [None]
